FAERS Safety Report 7161315-X (Version None)
Quarter: 2010Q4

REPORT INFORMATION
  Report Type: 
  Country: None (occurrence: None)
  Receive Date: 20101210
  Receipt Date: 20101210
  Transmission Date: 20110411
  Serious: Yes (Hospitalization, Other)
  Sender: FDA-Public Use
  Company Number: None

PATIENT
  Age: 63 Year
  Sex: Male
  Weight: 112.4921 kg

DRUGS (11)
  1. ACTOS [Suspect]
     Indication: TYPE 2 DIABETES MELLITUS
     Dosage: 30MG ONE TAB DAILY P.O.
     Route: 048
     Dates: start: 20071023
  2. MICARDIS [Concomitant]
  3. TRILIPIX [Concomitant]
  4. PRANDIN [Concomitant]
  5. LORAZEPAM [Concomitant]
  6. CRESTOR [Concomitant]
  7. PLAVIX [Concomitant]
  8. COREG CR [Concomitant]
  9. ASPIRIN [Concomitant]
  10. VITAMIN D [Concomitant]
  11. DIRECT BEAM RADIATION [Concomitant]

REACTIONS (2)
  - BLADDER CANCER [None]
  - HAEMATURIA [None]
